FAERS Safety Report 16440396 (Version 1)
Quarter: 2019Q3

REPORT INFORMATION
  Report Type: Spontaneous
  Country: US (occurrence: US)
  Receive Date: 20190617
  Receipt Date: 20190617
  Transmission Date: 20191004
  Serious: Yes (Other)
  Sender: FDA-Public Use
  Company Number: None

PATIENT
  Age: 25 Year
  Sex: Male
  Weight: 81 kg

DRUGS (5)
  1. FISH OIL [Concomitant]
     Active Substance: FISH OIL
  2. FINASTERIDE. [Suspect]
     Active Substance: FINASTERIDE
     Indication: ALOPECIA
     Dosage: ?          QUANTITY:1 TABLET(S);?
     Route: 048
     Dates: start: 20190531, end: 20190614
  3. MULTIVITAMIN [Concomitant]
     Active Substance: VITAMINS
  4. BIOTIN [Concomitant]
     Active Substance: BIOTIN
  5. MAGNESIUM SUPPLEMENTS [Concomitant]
     Active Substance: MAGNESIUM

REACTIONS (5)
  - Loss of libido [None]
  - Testicular pain [None]
  - Feeling abnormal [None]
  - Feeling drunk [None]
  - Dizziness [None]

NARRATIVE: CASE EVENT DATE: 20190614
